FAERS Safety Report 6517035-5 (Version None)
Quarter: 2009Q4

REPORT INFORMATION
  Report Type: 
  Country: None (occurrence: None)
  Receive Date: 20091223
  Receipt Date: 20091217
  Transmission Date: 20100525
  Serious: Yes (Hospitalization, Other)
  Sender: FDA-Public Use
  Company Number: JP-NOVOPROD-301408

PATIENT
  Age: 75 Year
  Sex: Male
  Weight: 49 kg

DRUGS (4)
  1. NOVORAPID CHU PENFILL [Suspect]
     Indication: TYPE 2 DIABETES MELLITUS
     Dosage: /SC
     Route: 058
     Dates: start: 20091103, end: 20091105
  2. HUMALOG [Concomitant]
     Indication: TYPE 2 DIABETES MELLITUS
  3. INSULIN GLULISINE [Concomitant]
     Indication: TYPE 2 DIABETES MELLITUS
  4. HUMULIN R [Concomitant]
     Indication: TYPE 2 DIABETES MELLITUS
     Route: 042

REACTIONS (2)
  - DIABETES MELLITUS INADEQUATE CONTROL [None]
  - INDURATION [None]
